FAERS Safety Report 15569892 (Version 7)
Quarter: 2019Q1

REPORT INFORMATION
  Report Type: Spontaneous
  Country: US (occurrence: US)
  Receive Date: 20181031
  Receipt Date: 20190227
  Transmission Date: 20190417
  Serious: Yes (Hospitalization, Other)
  Sender: FDA-Public Use
  Company Number: PHEH2018US044118

PATIENT
  Age: 66 Year
  Sex: Female

DRUGS (5)
  1. AFINITOR [Suspect]
     Active Substance: EVEROLIMUS
     Indication: RENAL CANCER
     Dosage: 5 MG, QD
     Route: 048
     Dates: start: 201808
  2. LENVATINIB [Interacting]
     Active Substance: LENVATINIB
     Dosage: 14 MG, QD
     Route: 048
     Dates: start: 201812
  3. INSULIN [Interacting]
     Active Substance: INSULIN NOS
     Indication: PRODUCT USED FOR UNKNOWN INDICATION
     Dosage: UNK
     Route: 058
  4. LENVATINIB [Interacting]
     Active Substance: LENVATINIB
     Indication: RENAL CANCER
     Dosage: 18 MG, QD
     Route: 048
     Dates: start: 201808
  5. LENVATINIB [Interacting]
     Active Substance: LENVATINIB
     Dosage: 18 MG, QD
     Route: 048
     Dates: start: 201808

REACTIONS (35)
  - Dyspepsia [Unknown]
  - Movement disorder [Unknown]
  - Blood blister [Unknown]
  - Balance disorder [Recovering/Resolving]
  - Blood glucose decreased [Recovered/Resolved]
  - Skin ulcer [Recovering/Resolving]
  - Drug interaction [Unknown]
  - Abdominal discomfort [Not Recovered/Not Resolved]
  - Central nervous system lesion [Recovered/Resolved]
  - Contusion [Unknown]
  - Anaemia [Recovering/Resolving]
  - Arthralgia [Recovered/Resolved]
  - Nausea [Unknown]
  - Vomiting [Unknown]
  - Weight decreased [Not Recovered/Not Resolved]
  - Blood glucose abnormal [Unknown]
  - Bone pain [Recovering/Resolving]
  - Alopecia [Unknown]
  - Fall [Not Recovered/Not Resolved]
  - Pruritus [Unknown]
  - Nasopharyngitis [Not Recovered/Not Resolved]
  - Radiation injury [Unknown]
  - Lethargy [Unknown]
  - Diarrhoea [Unknown]
  - Gastrointestinal tract irritation [Unknown]
  - Pain [Unknown]
  - Muscle fatigue [Unknown]
  - Burn oesophageal [Unknown]
  - Onychoclasis [Unknown]
  - Feeling abnormal [Not Recovered/Not Resolved]
  - Confusional state [Recovering/Resolving]
  - Body temperature abnormal [Unknown]
  - Blood glucose fluctuation [Unknown]
  - Fatigue [Unknown]
  - Dysphagia [Unknown]

NARRATIVE: CASE EVENT DATE: 2018
